FAERS Safety Report 9942531 (Version 2)
Quarter: 2014Q1

REPORT INFORMATION
  Report Type: Spontaneous
  Country: US (occurrence: US)
  Receive Date: 20140303
  Receipt Date: 20140303
  Transmission Date: 20141002
  Serious: Yes (Disabling)
  Sender: FDA-Public Use
  Company Number: US-GE HEALTHCARE MEDICAL DIAGNOSTICS-OSCN-PR-0712S-0482

PATIENT
  Age: 66 Year
  Sex: Female

DRUGS (12)
  1. OMNISCAN [Suspect]
     Indication: DEVICE RELATED INFECTION
     Route: 042
     Dates: start: 20061101, end: 20061101
  2. OMNISCAN [Suspect]
     Indication: PAIN
     Route: 042
     Dates: start: 20061108, end: 20061108
  3. OMNISCAN [Suspect]
     Indication: RENAL FAILURE CHRONIC
     Route: 042
     Dates: start: 20061112, end: 20061112
  4. OMNISCAN [Suspect]
     Indication: STAPHYLOCOCCAL BACTERAEMIA
     Route: 042
     Dates: start: 20070119, end: 20070119
  5. OMNISCAN [Suspect]
     Indication: DYSPHAGIA
  6. OMNISCAN [Suspect]
     Indication: MUSCULOSKELETAL DISCOMFORT
  7. OMNISCAN [Suspect]
     Indication: PHARYNGEAL ABSCESS
  8. OMNISCAN [Suspect]
     Indication: OEDEMA
  9. OMNISCAN [Suspect]
     Indication: MYELITIS
  10. OMNISCAN [Suspect]
     Indication: BACK PAIN
  11. MAGNEVIST [Suspect]
     Indication: ADRENAL MASS
     Route: 042
     Dates: start: 20010322, end: 20010322
  12. MAGNEVIST [Suspect]
     Route: 042
     Dates: start: 20031020, end: 20031020

REACTIONS (1)
  - Nephrogenic systemic fibrosis [Not Recovered/Not Resolved]
